FAERS Safety Report 15066038 (Version 1)
Quarter: 2018Q2

REPORT INFORMATION
  Report Type: Spontaneous
  Country: IT (occurrence: IT)
  Receive Date: 20180626
  Receipt Date: 20180626
  Transmission Date: 20180711
  Serious: Yes (Hospitalization, Disabling, Other)
  Sender: FDA-Public Use
  Company Number: IT-WEST-WARD PHARMACEUTICALS CORP.-IT-H14001-18-05123

PATIENT
  Age: 53 Year
  Sex: Male

DRUGS (4)
  1. DEXAMETHASONE. [Concomitant]
     Active Substance: DEXAMETHASONE
     Indication: ACUTE LYMPHOCYTIC LEUKAEMIA
     Route: 037
  2. METHOTREXATE. [Suspect]
     Active Substance: METHOTREXATE
     Indication: PROPHYLAXIS
     Route: 037
  3. METHOTREXATE. [Suspect]
     Active Substance: METHOTREXATE
     Dosage: 5000 MG/SQM OVER 24 H; HIGH-DOSE METHOTREXATE BLOCK
     Route: 065
  4. CYTARABINE. [Suspect]
     Active Substance: CYTARABINE
     Indication: ACUTE LYMPHOCYTIC LEUKAEMIA
     Route: 037

REACTIONS (8)
  - Urinary incontinence [Unknown]
  - Paraplegia [Unknown]
  - Myelopathy [Not Recovered/Not Resolved]
  - Blindness [Unknown]
  - Neurotoxicity [Not Recovered/Not Resolved]
  - Pleocytosis [Unknown]
  - Leukoencephalopathy [Not Recovered/Not Resolved]
  - CSF protein increased [Unknown]
